FAERS Safety Report 9819284 (Version 6)
Quarter: 2018Q2

REPORT INFORMATION
  Report Type: Spontaneous
  Country: US (occurrence: US)
  Receive Date: 20140115
  Receipt Date: 20180416
  Transmission Date: 20180711
  Serious: Yes (Other)
  Sender: FDA-Public Use
  Company Number: US-BAYER-2013-145678

PATIENT
  Age: 23 Year
  Sex: Female
  Weight: 235 kg

DRUGS (6)
  1. ESSURE [Suspect]
     Active Substance: DEVICE
     Indication: FEMALE STERILISATION
     Dosage: UNK
     Dates: start: 20120901, end: 20150617
  2. DEPO-PROVERA [Concomitant]
     Active Substance: MEDROXYPROGESTERONE ACETATE
  3. ZANTAC [Concomitant]
     Active Substance: RANITIDINE HYDROCHLORIDE
  4. MIRENA [Suspect]
     Active Substance: LEVONORGESTREL
     Indication: CONTRACEPTION
  5. MIRENA [Suspect]
     Active Substance: LEVONORGESTREL
     Indication: CONTRACEPTION
     Dosage: 20 MCG/24HR, CONT
     Route: 015
  6. PROZAC [Concomitant]
     Active Substance: FLUOXETINE HYDROCHLORIDE

REACTIONS (41)
  - Decreased appetite [Unknown]
  - Insomnia [Unknown]
  - Fallopian tube spasm [Unknown]
  - Somnolence [Unknown]
  - Nausea [Unknown]
  - Allergy to metals [Unknown]
  - Genital haemorrhage [Recovered/Resolved]
  - Nephrolithiasis [Unknown]
  - Feeling abnormal [Unknown]
  - Coital bleeding [Unknown]
  - Menorrhagia [Unknown]
  - Adnexa uteri pain [Recovered/Resolved]
  - Photophobia [Unknown]
  - Malaise [None]
  - Oligomenorrhoea [Unknown]
  - Amenorrhoea [Recovered/Resolved]
  - Fatigue [Recovering/Resolving]
  - Dizziness [Unknown]
  - Abdominal pain lower [Recovered/Resolved]
  - Headache [Unknown]
  - Endometriosis [Unknown]
  - Premenstrual syndrome [Unknown]
  - Uterine pain [Recovered/Resolved]
  - Presyncope [Unknown]
  - Pain [Recovered/Resolved]
  - Procedural pain [Unknown]
  - Migraine [Unknown]
  - Hyperacusis [Unknown]
  - Abdominal distension [Unknown]
  - Procedural pain [Unknown]
  - Depression suicidal [Unknown]
  - Urticaria [Recovered/Resolved]
  - Bacterial vaginosis [Unknown]
  - Pelvic pain [Recovered/Resolved]
  - Adrenal disorder [Recovered/Resolved]
  - Urticaria [Recovered/Resolved]
  - Weight decreased [Unknown]
  - Back pain [Unknown]
  - Dysmenorrhoea [Unknown]
  - Vulvovaginal rash [Unknown]
  - Dysmenorrhoea [Recovered/Resolved]

NARRATIVE: CASE EVENT DATE: 2012
